FAERS Safety Report 9003883 (Version 4)
Quarter: 2014Q4

REPORT INFORMATION
  Report Type: Spontaneous
  Country: CA (occurrence: CA)
  Receive Date: 20130108
  Receipt Date: 20141021
  Transmission Date: 20150529
  Serious: Yes (Hospitalization)
  Sender: FDA-Public Use
  Company Number: CA-US-EMD SERONO, INC.-7185739

PATIENT
  Age: 46 Year
  Sex: Female

DRUGS (2)
  1. REBIF [Suspect]
     Active Substance: INTERFERON BETA-1A
     Indication: RELAPSING-REMITTING MULTIPLE SCLEROSIS
     Dosage: MULTI DOSE
     Route: 058
     Dates: start: 20050927
  2. REBIF [Suspect]
     Active Substance: INTERFERON BETA-1A

REACTIONS (8)
  - Multiple sclerosis relapse [Not Recovered/Not Resolved]
  - Influenza like illness [Unknown]
  - Needle issue [Unknown]
  - Feeling hot [Unknown]
  - Malaise [Unknown]
  - Pancreatitis [Unknown]
  - Headache [Recovering/Resolving]
  - Device malfunction [Unknown]

NARRATIVE: CASE EVENT DATE: 200509
